FAERS Safety Report 7054636-2 (Version None)
Quarter: 2010Q4

REPORT INFORMATION
  Report Type: 
  Country: None (occurrence: None)
  Receive Date: 20101015
  Receipt Date: 20101006
  Transmission Date: 20110411
  Serious: Yes (Congenital Anomaly, Other)
  Sender: FDA-Public Use
  Company Number: 2010US004219

PATIENT
  Sex: Female
  Weight: 3 kg

DRUGS (5)
  1. PROGRAF [Suspect]
     Indication: DRUG EXPOSURE DURING PREGNANCY
     Dosage: 4MG IN MORNING, 5 MG IN EVENING, ORAL
     Route: 048
     Dates: end: 20071101
  2. PROGRAF [Suspect]
     Indication: DRUG EXPOSURE DURING PREGNANCY
     Dosage: 4MG IN MORNING, 5 MG IN EVENING, ORAL
     Route: 048
     Dates: start: 20071101, end: 20080301
  3. MYCOPHENOLIC ACID [Concomitant]
  4. PREDNISONE [Concomitant]
  5. PRENATAL PLUS IRON (ASCORBIC ACID, CALCIUM, COLECALCIFEROL, COPPER, CY [Concomitant]

REACTIONS (6)
  - CYTOGENETIC ANALYSIS ABNORMAL [None]
  - GASTROOESOPHAGEAL REFLUX DISEASE [None]
  - HEART DISEASE CONGENITAL [None]
  - LARYNGOMALACIA [None]
  - MATERNAL DRUGS AFFECTING FOETUS [None]
  - MILK ALLERGY [None]
